FAERS Safety Report 14076309 (Version 1)
Quarter: 2017Q4

REPORT INFORMATION
  Report Type: Spontaneous
  Country: US (occurrence: US)
  Receive Date: 20171011
  Receipt Date: 20171011
  Transmission Date: 20180321
  Serious: Yes (Other)
  Sender: FDA-Public Use
  Company Number: US-BAUSCH-BL-2017-028789

PATIENT
  Sex: Male

DRUGS (1)
  1. RETISERT [Suspect]
     Active Substance: FLUOCINOLONE ACETONIDE
     Indication: PRODUCT USED FOR UNKNOWN INDICATION
     Route: 065

REACTIONS (3)
  - Intentional product use issue [Unknown]
  - Visual field defect [Unknown]
  - Ill-defined disorder [Unknown]
